FAERS Safety Report 4695554-4 (Version None)
Quarter: 2005Q2

REPORT INFORMATION
  Report Type: 
  Country: None (occurrence: None)
  Receive Date: 20050523
  Receipt Date: 20050512
  Transmission Date: 20051028
  Serious: Yes (Hospitalization)
  Sender: FDA-Public Use
  Company Number: 2005CG00917

PATIENT
  Age: 62 Year
  Sex: Male

DRUGS (8)
  1. SELOZOK [Suspect]
     Route: 048
     Dates: start: 20040924, end: 20050325
  2. SELOZOK [Suspect]
     Route: 048
     Dates: start: 20050325, end: 20050404
  3. OMEPRAZOLE [Concomitant]
     Route: 048
  4. COVERSYL [Concomitant]
     Route: 048
     Dates: end: 20050325
  5. TAHOR [Concomitant]
  6. DIGOXIN [Concomitant]
  7. KARDEGIC [Concomitant]
  8. VASTAREL [Concomitant]

REACTIONS (3)
  - ACUTE FEBRILE NEUTROPHILIC DERMATOSIS [None]
  - ERYTHEMA MULTIFORME [None]
  - TOXIC SKIN ERUPTION [None]
